FAERS Safety Report 8198293-0 (Version None)
Quarter: 2012Q1

REPORT INFORMATION
  Report Type: 
  Country: None (occurrence: None)
  Receive Date: 20120309
  Receipt Date: 20120305
  Transmission Date: 20120608
  Serious: Yes (Other)
  Sender: FDA-Public Use
  Company Number: JP-MERCK-1203USA00996

PATIENT
  Age: 62 Year
  Sex: Male

DRUGS (1)
  1. JANUVIA [Suspect]
     Indication: DIABETES MELLITUS
     Route: 048

REACTIONS (2)
  - SUDDEN HEARING LOSS [None]
  - DIZZINESS [None]
